FAERS Safety Report 9839565 (Version 1)
Quarter: 2014Q1

REPORT INFORMATION
  Report Type: Report from Study
  Country: US (occurrence: US)
  Receive Date: 20140124
  Receipt Date: 20140124
  Transmission Date: 20141002
  Serious: Yes (Hospitalization)
  Sender: FDA-Public Use
  Company Number: US-ROCHE-1326768

PATIENT
  Sex: Male

DRUGS (20)
  1. PULMOZYME [Suspect]
     Indication: CYSTIC FIBROSIS
     Route: 048
     Dates: start: 20041203
  2. ATROVENT [Concomitant]
     Dosage: 2 PUFFS
     Route: 065
  3. TYLENOL [Concomitant]
     Route: 048
  4. VANCOMYCIN [Concomitant]
     Route: 042
  5. ADVAIR DISKUS [Concomitant]
     Dosage: 100/50 MCG
     Route: 065
     Dates: start: 20040604
  6. PROTONIX (UNITED STATES) [Concomitant]
     Route: 042
  7. LOVENOX [Concomitant]
     Route: 058
  8. CLARITIN [Concomitant]
     Route: 065
     Dates: start: 20040604
  9. FLONASE [Concomitant]
     Dosage: 1 PUFF
     Route: 065
     Dates: start: 20050205
  10. CIPRO [Concomitant]
     Route: 042
  11. TAMIFLU [Concomitant]
     Route: 048
  12. CEFEPIME [Concomitant]
     Route: 042
  13. ZITHROMAX [Concomitant]
     Route: 048
     Dates: start: 20100408
  14. TOBI [Concomitant]
     Dosage: 300 MG/5 ML DAILY
     Route: 065
     Dates: start: 20100408
  15. HYDROCHLOROTHIAZIDE [Concomitant]
     Route: 065
     Dates: start: 20050205
  16. ZENPEP [Concomitant]
     Route: 065
     Dates: start: 20100630
  17. HYPERTONIC SALINE [Concomitant]
     Route: 065
     Dates: start: 20100804
  18. ALBUTEROL [Concomitant]
     Dosage: 2 PUFFS
     Route: 065
  19. TRIMETHOPRIM [Concomitant]
  20. SULFAMETHOXAZOLE [Concomitant]
     Route: 048

REACTIONS (6)
  - Condition aggravated [Unknown]
  - Pneumonia [Unknown]
  - Chest pain [Unknown]
  - Dyspnoea [Unknown]
  - Cough [Unknown]
  - Pyrexia [Unknown]
